FAERS Safety Report 23153303 (Version 1)
Quarter: 2023Q4

REPORT INFORMATION
  Report Type: Other
  Country: MX (occurrence: None)
  Receive Date: 20231107
  Receipt Date: 20231107
  Transmission Date: 20240109
  Serious: Yes (Death, Hospitalization)
  Sender: FDA-Public Use
  Company Number: MX-ROCHE-3451958

PATIENT

DRUGS (10)
  1. MYCOPHENOLATE MOFETIL [Suspect]
     Active Substance: MYCOPHENOLATE MOFETIL
     Indication: Lupus nephritis
     Dosage: TITRATED TO 2.0 TO 3.0 G PER DAY
     Route: 065
  2. MYCOPHENOLATE MOFETIL [Suspect]
     Active Substance: MYCOPHENOLATE MOFETIL
     Indication: Immunosuppressant drug therapy
  3. CYCLOPHOSPHAMIDE [Suspect]
     Active Substance: CYCLOPHOSPHAMIDE
     Indication: Lupus nephritis
     Dosage: MONTHLY INFUSIONS
     Route: 042
  4. CYCLOPHOSPHAMIDE [Suspect]
     Active Substance: CYCLOPHOSPHAMIDE
     Indication: Immunosuppressant drug therapy
  5. AZATHIOPRINE [Suspect]
     Active Substance: AZATHIOPRINE
     Indication: Lupus nephritis
     Dosage: IN DOSAGES OF 1.5-2.0 MG/KG
     Route: 065
  6. AZATHIOPRINE [Suspect]
     Active Substance: AZATHIOPRINE
     Indication: Immunosuppressant drug therapy
  7. METHYLPREDNISOLONE [Suspect]
     Active Substance: METHYLPREDNISOLONE
     Indication: Lupus nephritis
     Dosage: PULSE THERAPY
     Route: 065
  8. METHYLPREDNISOLONE [Suspect]
     Active Substance: METHYLPREDNISOLONE
     Indication: Immunosuppressant drug therapy
  9. PREDNISONE [Suspect]
     Active Substance: PREDNISONE
     Indication: Lupus nephritis
     Route: 048
  10. PREDNISONE [Suspect]
     Active Substance: PREDNISONE
     Indication: Immunosuppressant drug therapy

REACTIONS (17)
  - Septic shock [Fatal]
  - Haemorrhagic stroke [Fatal]
  - Ischaemic stroke [Fatal]
  - Pulmonary haemorrhage [Fatal]
  - Upper gastrointestinal haemorrhage [Fatal]
  - Cardiac failure [Unknown]
  - Pneumonia [Unknown]
  - Posterior reversible encephalopathy syndrome [Unknown]
  - Hypertensive urgency [Unknown]
  - Pancreatitis acute [Unknown]
  - Renal haematoma [Unknown]
  - Urinary tract infection [Unknown]
  - Cellulitis [Unknown]
  - Herpes zoster [Unknown]
  - Gastroenteritis [Unknown]
  - Retinitis viral [Unknown]
  - Device related infection [Unknown]
